FAERS Safety Report 8942335 (Version 1)
Quarter: 2012Q4

REPORT INFORMATION
  Report Type: Spontaneous
  Country: US (occurrence: None)
  Receive Date: 20121123
  Receipt Date: 20121123
  Transmission Date: 20130627
  Serious: Yes (Other)
  Sender: FDA-Public Use
  Company Number: 2012110048

PATIENT
  Age: 46 Year
  Sex: Female

DRUGS (4)
  1. FELBAMATE [Suspect]
     Indication: GRAND MAL SEIZURE
     Dosage: (1200 mg,3 in 1 D)
     Route: 048
     Dates: start: 201211
  2. FELBAMATE [Concomitant]
  3. KEPPRA XR [Concomitant]
  4. ZONEGRAN (ZONISAMIDE) [Concomitant]

REACTIONS (1)
  - Convulsion [None]
